FAERS Safety Report 13399846 (Version 1)
Quarter: 2017Q2

REPORT INFORMATION
  Report Type: Spontaneous
  Country: US (occurrence: US)
  Receive Date: 20170404
  Receipt Date: 20170404
  Transmission Date: 20170830
  Serious: No
  Sender: FDA-Public Use
  Company Number: None

PATIENT

DRUGS (1)
  1. HEPARIN HEPARIN SODIUM PREMIXED BAG 25,000 PER 250ML [Suspect]
     Active Substance: HEPARIN SODIUM
     Route: 042

REACTIONS (3)
  - Circumstance or information capable of leading to medication error [None]
  - Product barcode issue [None]
  - Product packaging issue [None]
